FAERS Safety Report 6369924-2 (Version None)
Quarter: 2009Q3

REPORT INFORMATION
  Report Type: 
  Country: None (occurrence: None)
  Receive Date: 20090923
  Receipt Date: 20080605
  Transmission Date: 20100115
  Serious: Yes (Other)
  Sender: FDA-Public Use
  Company Number: US-ASTRAZENECA-2006UW11753

PATIENT
  Age: 34 Year
  Sex: Male
  Weight: 81.6 kg

DRUGS (15)
  1. SEROQUEL [Suspect]
     Indication: SCHIZOPHRENIA
     Route: 048
     Dates: start: 19980101, end: 20061201
  2. SEROQUEL [Suspect]
     Indication: DEPRESSION
     Route: 048
     Dates: start: 19980101, end: 20061201
  3. SEROQUEL [Suspect]
     Indication: PARANOIA
     Route: 048
     Dates: start: 19980101, end: 20061201
  4. SEROQUEL [Suspect]
     Indication: HALLUCINATION, AUDITORY
     Route: 048
     Dates: start: 19980101, end: 20061201
  5. SEROQUEL [Suspect]
     Route: 048
     Dates: start: 20030707
  6. SEROQUEL [Suspect]
     Route: 048
     Dates: start: 20030707
  7. SEROQUEL [Suspect]
     Route: 048
     Dates: start: 20030707
  8. SEROQUEL [Suspect]
     Route: 048
     Dates: start: 20030707
  9. ZYPREXA [Suspect]
  10. RISPERDAL [Concomitant]
     Route: 048
  11. NEURONTIN [Concomitant]
     Dates: start: 20040202
  12. SONATA [Concomitant]
     Dates: start: 20040617
  13. LIPITOR [Concomitant]
     Dates: start: 20040617
  14. WELLBUTRIN XL [Concomitant]
     Dosage: 150-300 MG
     Dates: start: 20040721
  15. LAMISIL [Concomitant]
     Dosage: 250 MG
     Dates: start: 20050218

REACTIONS (2)
  - BLOOD CHOLESTEROL INCREASED [None]
  - TARDIVE DYSKINESIA [None]
